FAERS Safety Report 7993619-2 (Version None)
Quarter: 2011Q4

REPORT INFORMATION
  Report Type: 
  Country: None (occurrence: None)
  Receive Date: 20111219
  Receipt Date: 20111209
  Transmission Date: 20120403
  Serious: Yes (Hospitalization, Other)
  Sender: FDA-Public Use
  Company Number: US-ASTRAZENECA-2011SE52503

PATIENT
  Age: 85 Year
  Sex: Male

DRUGS (4)
  1. ANTIDEPRESSANT [Concomitant]
  2. HYDROCODONE [Concomitant]
  3. CRESTOR [Suspect]
     Route: 048
  4. TRAMADOL HCL [Concomitant]

REACTIONS (20)
  - COLON CANCER [None]
  - NEOPLASM MALIGNANT [None]
  - VERTIGO [None]
  - CARDIAC DISORDER [None]
  - DIARRHOEA [None]
  - BACK PAIN [None]
  - MEDICAL DEVICE PAIN [None]
  - RENAL FAILURE [None]
  - SPONDYLITIS [None]
  - SPINAL OSTEOARTHRITIS [None]
  - WEIGHT DECREASED [None]
  - DIZZINESS [None]
  - DEPRESSION [None]
  - HYPERHIDROSIS [None]
  - DRUG DOSE OMISSION [None]
  - BLADDER CANCER [None]
  - ARTHRITIS [None]
  - HEADACHE [None]
  - INSOMNIA [None]
  - HOT FLUSH [None]
